FAERS Safety Report 9241672 (Version 2)
Quarter: 2013Q2

REPORT INFORMATION
  Report Type: Spontaneous
  Country: US (occurrence: US)
  Receive Date: 20130418
  Receipt Date: 20130619
  Transmission Date: 20140414
  Serious: Yes (Disabling, Other)
  Sender: FDA-Public Use
  Company Number: US-PFIZER INC-2013117793

PATIENT
  Age: 89 Year
  Sex: Female
  Weight: 63.49 kg

DRUGS (2)
  1. XALATAN [Suspect]
     Indication: MACULAR DEGENERATION
     Dosage: 1 GTT, 1X/DAY
     Route: 047
  2. METFORMIN [Concomitant]
     Indication: DIABETES MELLITUS
     Dosage: UNK

REACTIONS (5)
  - Blindness [Unknown]
  - Eye pruritus [Unknown]
  - Eye irritation [Unknown]
  - Eye allergy [Unknown]
  - Off label use [Unknown]
